FAERS Safety Report 6834653-5 (Version None)
Quarter: 2010Q3

REPORT INFORMATION
  Report Type: 
  Country: None (occurrence: None)
  Receive Date: 20100712
  Receipt Date: 20070430
  Transmission Date: 20110219
  Serious: No
  Sender: FDA-Public Use
  Company Number: US-PFIZER INC-2007022647

PATIENT
  Sex: Male
  Weight: 106.59 kg

DRUGS (3)
  1. VARENICLINE [Suspect]
     Indication: EX-TOBACCO USER
     Route: 048
     Dates: start: 20070211
  2. ASPIRIN [Concomitant]
  3. VALIUM [Concomitant]

REACTIONS (2)
  - HYPERSENSITIVITY [None]
  - RASH [None]
